FAERS Safety Report 12573922 (Version 1)
Quarter: 2016Q3

REPORT INFORMATION
  Report Type: Spontaneous
  Country: US (occurrence: US)
  Receive Date: 20160720
  Receipt Date: 20160720
  Transmission Date: 20161109
  Serious: No
  Sender: FDA-Public Use
  Company Number: US-BEH-2016070894

PATIENT
  Sex: Female
  Weight: 76.19 kg

DRUGS (7)
  1. MATRICARIA RECUTITA [Concomitant]
     Active Substance: MATRICARIA RECUTITA
  2. LIALDA [Concomitant]
     Active Substance: MESALAMINE
  3. HIZENTRA [Suspect]
     Active Substance: HUMAN IMMUNOGLOBULIN G
     Indication: IMMUNODEFICIENCY COMMON VARIABLE
     Dosage: 18 G, QW
     Route: 058
  4. ENTOCORT [Concomitant]
     Active Substance: BUDESONIDE
  5. EPIPEN [Concomitant]
     Active Substance: EPINEPHRINE
  6. LMX                                /00033401/ [Concomitant]
  7. DIPHENHYDRAMINE. [Concomitant]
     Active Substance: DIPHENHYDRAMINE

REACTIONS (1)
  - Bronchitis [Unknown]
